FAERS Safety Report 6382969-1 (Version None)
Quarter: 2009Q3

REPORT INFORMATION
  Report Type: 
  Country: None (occurrence: None)
  Receive Date: 20090928
  Receipt Date: 20090928
  Transmission Date: 20100115
  Serious: Yes (Other)
  Sender: FDA-Public Use
  Company Number: None

PATIENT
  Age: 66 Year
  Sex: Male
  Weight: 95.9 kg

DRUGS (6)
  1. CYMBALTA [Suspect]
     Indication: DEPRESSION
     Dosage: CYMBALTA 60MG DAILY PO
     Route: 048
     Dates: start: 20090211, end: 20090811
  2. CYMBALTA [Suspect]
     Indication: PAIN
     Dosage: CYMBALTA 60MG DAILY PO
     Route: 048
     Dates: start: 20090211, end: 20090811
  3. SYNTHROID [Concomitant]
  4. METHOTREXATE [Concomitant]
  5. VYTORIN [Concomitant]
  6. PRILOSEC [Concomitant]

REACTIONS (3)
  - BALANCE DISORDER [None]
  - DEAFNESS [None]
  - TINNITUS [None]
